FAERS Safety Report 6104482-9 (Version None)
Quarter: 2009Q1

REPORT INFORMATION
  Report Type: 
  Country: None (occurrence: None)
  Receive Date: 20090305
  Receipt Date: 20090302
  Transmission Date: 20090719
  Serious: Yes (Life-Threatening)
  Sender: FDA-Public Use
  Company Number: DE-B.I. PHARMACEUTICALS,INC./RIDGEFIELD-2009-DE-01800DE

PATIENT
  Sex: Female

DRUGS (4)
  1. AGGRENOX [Suspect]
     Indication: TRANSIENT ISCHAEMIC ATTACK
     Dosage: 2ANZ
  2. CARMEN [Concomitant]
     Indication: HYPERTENSION
  3. ENALAPRIL [Concomitant]
     Indication: HYPERTENSION
  4. BISOPROLOL [Concomitant]
     Indication: HYPERTENSION

REACTIONS (5)
  - CIRCULATORY COLLAPSE [None]
  - HYPERTENSION [None]
  - NAUSEA [None]
  - SPEECH DISORDER [None]
  - VOMITING [None]
